FAERS Safety Report 6256822-8 (Version None)
Quarter: 2009Q3

REPORT INFORMATION
  Report Type: 
  Country: None (occurrence: None)
  Receive Date: 20090706
  Receipt Date: 20090625
  Transmission Date: 20100115
  Serious: Yes (Hospitalization, Other)
  Sender: FDA-Public Use
  Company Number: PHEH2008US06050

PATIENT
  Sex: Female

DRUGS (14)
  1. VIVELLE-DOT [Suspect]
     Indication: MENOPAUSAL SYMPTOMS
     Dosage: UNK
     Route: 062
     Dates: start: 19980814, end: 20021226
  2. PREMARIN [Suspect]
     Indication: MENOPAUSAL SYMPTOMS
     Dosage: UNK
     Dates: start: 19980814, end: 20021226
  3. PREMPRO [Suspect]
     Indication: MENOPAUSAL SYMPTOMS
     Dosage: UNK
     Dates: start: 19980814, end: 20021226
  4. MEDROXYPROGESTERONE [Suspect]
     Indication: MENOPAUSAL SYMPTOMS
     Dosage: UNK
     Dates: start: 19980814, end: 20021226
  5. PROMETRIUM [Suspect]
     Indication: MENOPAUSAL SYMPTOMS
     Dosage: UNK
     Dates: start: 19980814, end: 20021226
  6. PRAVACHOL [Concomitant]
  7. TRIAMTERENE AND HYDROCHLOROTHIAZID ^HARRIS^ [Concomitant]
  8. LORAZEPAM [Concomitant]
  9. LEVOTHYROXINE SODIUM [Concomitant]
  10. FORTEO [Concomitant]
  11. CALCIUM [Concomitant]
  12. COUMADIN [Concomitant]
  13. OXYCODONE [Concomitant]
  14. CEPHALEXIN [Concomitant]

REACTIONS (13)
  - ANXIETY [None]
  - ARTHRALGIA [None]
  - BREAST CANCER [None]
  - DEPRESSED MOOD [None]
  - EMOTIONAL DISTRESS [None]
  - FALL [None]
  - FEMORAL NECK FRACTURE [None]
  - INJURY [None]
  - JOINT INJURY [None]
  - MASTECTOMY [None]
  - OSTEOARTHRITIS [None]
  - OSTEOPOROSIS [None]
  - PAIN [None]
